FAERS Safety Report 19759246 (Version 1)
Quarter: 2021Q3

REPORT INFORMATION
  Report Type: Spontaneous
  Country: US (occurrence: US)
  Receive Date: 20210829
  Receipt Date: 20210829
  Transmission Date: 20211014
  Serious: No
  Sender: FDA-Public Use
  Company Number: US-ASTRAZENECA-2021A675181

PATIENT
  Sex: Male
  Weight: 96.2 kg

DRUGS (2)
  1. PULMICORT FLEXHALER [Suspect]
     Active Substance: BUDESONIDE
     Indication: CHEMICAL BURN OF RESPIRATORY TRACT
     Dosage: 180 MCG, WHICH HE INHALED AS 2 PUFFS ONCE A DAY FOR ABOUT 20 YEARS
     Route: 055
     Dates: end: 2016
  2. SYMBICORT [Suspect]
     Active Substance: BUDESONIDE\FORMOTEROL FUMARATE DIHYDRATE
     Indication: INCREASED UPPER AIRWAY SECRETION
     Dosage: 160/4.5 MCG TWO TIMES A DAY
     Route: 055

REACTIONS (5)
  - Off label use [Unknown]
  - Pulmonary function test abnormal [Unknown]
  - Wrong technique in device usage process [Unknown]
  - Dysphonia [Not Recovered/Not Resolved]
  - Upper-airway cough syndrome [Recovered/Resolved]
